FAERS Safety Report 10272271 (Version 1)
Quarter: 2014Q3

REPORT INFORMATION
  Report Type: Spontaneous
  Country: GB (occurrence: GB)
  Receive Date: 20140702
  Receipt Date: 20140702
  Transmission Date: 20150326
  Serious: Yes (Other)
  Sender: FDA-Public Use
  Company Number: GB-BRISTOL-MYERS SQUIBB COMPANY-21068507

PATIENT
  Age: 48 Year
  Sex: Male
  Weight: 111 kg

DRUGS (3)
  1. BYDUREON [Suspect]
     Active Substance: EXENATIDE
     Route: 058
     Dates: start: 20131127, end: 20140520
  2. HUMULIN I [Concomitant]
     Route: 058
     Dates: start: 20130225
  3. NOVORAPID [Concomitant]
     Active Substance: INSULIN ASPART
     Dates: start: 20130225

REACTIONS (1)
  - Injection site cellulitis [Recovering/Resolving]

NARRATIVE: CASE EVENT DATE: 20140520
